FAERS Safety Report 6160092-9 (Version None)
Quarter: 2009Q2

REPORT INFORMATION
  Report Type: 
  Country: None (occurrence: None)
  Receive Date: 20090415
  Receipt Date: 20090402
  Transmission Date: 20091009
  Serious: Yes (Other)
  Sender: FDA-Public Use
  Company Number: 8044263

PATIENT
  Age: 85 Year
  Sex: Female

DRUGS (7)
  1. LEVETIRACETAM [Suspect]
     Indication: CONVULSION
     Dosage: 500 MG 2/D; PO
     Route: 048
     Dates: start: 20090127
  2. NEXIUM [Concomitant]
  3. LASIX [Concomitant]
  4. TRIATEC [Concomitant]
  5. ELISOR [Concomitant]
  6. PREVISCAN [Concomitant]
  7. EXELON [Concomitant]

REACTIONS (4)
  - COUGH [None]
  - LEUKOPENIA [None]
  - RHONCHI [None]
  - THROMBOCYTOPENIA [None]
